FAERS Safety Report 10968812 (Version 5)
Quarter: 2015Q2

REPORT INFORMATION
  Report Type: Spontaneous
  Country: HN (occurrence: US)
  Receive Date: 20150331
  Receipt Date: 20150624
  Transmission Date: 20150821
  Serious: Yes (Hospitalization)
  Sender: FDA-Public Use
  Company Number: HN-ROCHE-1557306

PATIENT
  Age: 3 Year
  Sex: Female

DRUGS (2)
  1. PREDNISONE. [Concomitant]
     Active Substance: PREDNISONE
     Indication: NEPHROTIC SYNDROME
     Route: 065
     Dates: start: 20140311
  2. CELLCEPT [Suspect]
     Active Substance: MYCOPHENOLATE MOFETIL\MYCOPHENOLATE MOFETIL HYDROCHLORIDE
     Indication: NEPHROTIC SYNDROME
     Route: 065
     Dates: start: 201409

REACTIONS (4)
  - Drug ineffective [Unknown]
  - Off label use [Unknown]
  - Suspected counterfeit product [Unknown]
  - Nephrotic syndrome [Recovered/Resolved]

NARRATIVE: CASE EVENT DATE: 20150113
